FAERS Safety Report 5771666-9 (Version None)
Quarter: 2008Q2

REPORT INFORMATION
  Report Type: 
  Country: None (occurrence: None)
  Receive Date: 20080611
  Receipt Date: 20080331
  Transmission Date: 20081010
  Serious: Yes (Death, Hospitalization, Other)
  Sender: FDA-Public Use
  Company Number: 2008AL006431

PATIENT
  Age: 66 Year
  Sex: Male

DRUGS (11)
  1. DIAZEPAM [Suspect]
     Dosage: 2.5 MG;BID;IV
     Route: 042
     Dates: start: 19860610, end: 19860612
  2. PAREGORIC LIQUID USP (ALPHARMA) (PAREGORIC LIQUID USP (ALPHARMA) [Suspect]
     Indication: POST PROCEDURAL COMPLICATION
     Dosage: 2 MG;BID;ED
     Route: 008
     Dates: start: 19860610, end: 19860614
  3. ANEXATE [Concomitant]
  4. HALOPERIDOL [Concomitant]
  5. DORMICUM [Concomitant]
  6. ALDOMET [Concomitant]
  7. KETOGAN [Concomitant]
  8. MARCAIN WITH FENTANYL [Concomitant]
  9. DIGITOXIN TAB [Concomitant]
  10. KETOGAN [Concomitant]
  11. MARCAINE [Concomitant]

REACTIONS (6)
  - COMA [None]
  - POST PROCEDURAL COMPLICATION [None]
  - PSYCHOMOTOR HYPERACTIVITY [None]
  - PSYCHOTIC DISORDER [None]
  - PULMONARY EMBOLISM [None]
  - SUDDEN DEATH [None]
